FAERS Safety Report 20179905 (Version 6)
Quarter: 2022Q4

REPORT INFORMATION
  Report Type: Report from Study
  Country: NL (occurrence: NL)
  Receive Date: 20211214
  Receipt Date: 20221216
  Transmission Date: 20230113
  Serious: Yes (Hospitalization)
  Sender: FDA-Public Use
  Company Number: NL-ABBVIE-21K-114-4108976-00

PATIENT
  Sex: Male

DRUGS (13)
  1. CARBIDOPA\LEVODOPA [Suspect]
     Active Substance: CARBIDOPA\LEVODOPA
     Indication: Parkinson^s disease
     Dosage: REMAINS AT 16 HOURS
     Route: 050
     Dates: start: 20210420, end: 2021
  2. CARBIDOPA\LEVODOPA [Suspect]
     Active Substance: CARBIDOPA\LEVODOPA
     Dosage: MD: 7.5ML, CD: 3.2ML/H, ED: 2.0ML  REMAINS AT 16 HOURS
     Route: 050
     Dates: start: 2021, end: 2021
  3. CARBIDOPA\LEVODOPA [Suspect]
     Active Substance: CARBIDOPA\LEVODOPA
     Dosage: MD: 7.0ML, CD: 3.0ML/H, ED: 2.0ML   REMAINS AT 16 HOURS
     Route: 050
     Dates: start: 2021, end: 2021
  4. CARBIDOPA\LEVODOPA [Suspect]
     Active Substance: CARBIDOPA\LEVODOPA
     Dosage: MD: 6.5ML, CD: 3.0ML/H, ED: 2.0ML, REMAINS AT 16 HOURS
     Route: 050
     Dates: start: 2021
  5. CARBIDOPA\LEVODOPA [Suspect]
     Active Substance: CARBIDOPA\LEVODOPA
     Route: 050
  6. MOVICOLON [Concomitant]
     Active Substance: POLYETHYLENE GLYCOL 3350\POTASSIUM CHLORIDE\SODIUM BICARBONATE\SODIUM CHLORIDE
     Indication: Constipation
  7. ENTACAPONE [Concomitant]
     Active Substance: ENTACAPONE
     Indication: Parkinson^s disease
     Dates: start: 201603
  8. LACTULOSE [Concomitant]
     Active Substance: LACTULOSE
     Indication: Stool analysis
     Dosage: 180 ML
     Route: 048
  9. CARBIDOPA\LEVODOPA [Concomitant]
     Active Substance: CARBIDOPA\LEVODOPA
     Indication: Parkinson^s disease
     Dosage: 625 MILLIGRAM
     Route: 048
     Dates: start: 201608
  10. RIVASTIGMINE [Concomitant]
     Active Substance: RIVASTIGMINE
     Indication: Hallucination
     Dosage: STRENGTH: 9.5 MG
  11. BENSERAZIDE\LEVODOPA [Concomitant]
     Active Substance: BENSERAZIDE\LEVODOPA
     Indication: Parkinson^s disease
     Route: 048
     Dates: start: 201606
  12. BENSERAZIDE HYDROCHLORIDE\LEVODOPA [Concomitant]
     Active Substance: BENSERAZIDE HYDROCHLORIDE\LEVODOPA
     Indication: Muscle rigidity
     Route: 048
  13. AMANTADINE [Concomitant]
     Active Substance: AMANTADINE
     Indication: Parkinson^s disease
     Dosage: 300 MILLIGRAM
     Route: 048
     Dates: start: 201703

REACTIONS (25)
  - Urinary tract infection [Recovered/Resolved]
  - Disinhibition [Not Recovered/Not Resolved]
  - Extra dose administered [Recovered/Resolved]
  - Stoma site reaction [Not Recovered/Not Resolved]
  - Fibroma [Not Recovered/Not Resolved]
  - Stress [Not Recovered/Not Resolved]
  - Malaise [Not Recovered/Not Resolved]
  - Tension [Not Recovered/Not Resolved]
  - Fall [Not Recovered/Not Resolved]
  - Infrequent bowel movements [Recovering/Resolving]
  - Confusional state [Not Recovered/Not Resolved]
  - Device difficult to use [Not Recovered/Not Resolved]
  - Reduced facial expression [Unknown]
  - Speech disorder [Unknown]
  - Fall [Recovered/Resolved]
  - Gait disturbance [Unknown]
  - Fatigue [Unknown]
  - Stoma site discharge [Not Recovered/Not Resolved]
  - Stoma site hypersensitivity [Not Recovered/Not Resolved]
  - Muscle rigidity [Unknown]
  - Stoma complication [Not Recovered/Not Resolved]
  - Therapeutic response shortened [Not Recovered/Not Resolved]
  - Dyskinesia [Not Recovered/Not Resolved]
  - Freezing phenomenon [Unknown]
  - Unevaluable event [Recovered/Resolved]

NARRATIVE: CASE EVENT DATE: 20210101
